FAERS Safety Report 5230355-X (Version None)
Quarter: 2007Q1

REPORT INFORMATION
  Report Type: 
  Country: None (occurrence: None)
  Receive Date: 20070206
  Receipt Date: 20070125
  Transmission Date: 20070707
  Serious: Yes (Hospitalization)
  Sender: FDA-Public Use
  Company Number: IT-PFIZER INC-2007007664

PATIENT
  Sex: Female

DRUGS (5)
  1. LYRICA [Suspect]
     Indication: BIPOLAR DISORDER
     Dosage: DAILY DOSE:250MG-FREQ:DAILY
     Route: 048
  2. CITALOPRAM [Concomitant]
     Route: 048
  3. LORAZEPAM [Concomitant]
     Route: 048
  4. ENTUMIN [Concomitant]
     Route: 048
  5. DEPAKOTE [Concomitant]
     Route: 048

REACTIONS (1)
  - HYPERTHERMIA MALIGNANT [None]
